FAERS Safety Report 23288955 (Version 1)
Quarter: 2023Q4

REPORT INFORMATION
  Report Type: Spontaneous
  Country: CO (occurrence: CO)
  Receive Date: 20231212
  Receipt Date: 20231212
  Transmission Date: 20240110
  Serious: Yes (Other)
  Sender: FDA-Public Use
  Company Number: CO-002147023-NVSC2022CO094676

PATIENT
  Sex: Female
  Weight: 66 kg

DRUGS (7)
  1. COSENTYX [Suspect]
     Active Substance: SECUKINUMAB
     Indication: Ankylosing spondylitis
     Dosage: 150 MG, QMO
     Route: 058
     Dates: start: 2019, end: 202201
  2. COSENTYX [Suspect]
     Active Substance: SECUKINUMAB
     Dosage: 300 MG, QMO
     Route: 058
     Dates: start: 20220330, end: 2023
  3. COSENTYX [Suspect]
     Active Substance: SECUKINUMAB
     Dosage: 300 MG, QMO
     Route: 058
     Dates: start: 2019
  4. ESCITALOPRAM [Suspect]
     Active Substance: ESCITALOPRAM OXALATE
     Indication: Depression
     Dosage: 10 MG, QD (SINCE 5 YEARS AGO)
     Route: 048
  5. PREGABALIN [Suspect]
     Active Substance: PREGABALIN
     Indication: Neuralgia
     Dosage: 150 MG, Q12H (SINCE 7 YEARS AGO)
     Route: 048
  6. CLOZAPINE [Concomitant]
     Active Substance: CLOZAPINE
     Indication: Sleep disorder
     Dosage: 100 MG, QD (3 YEARS AGO)
     Route: 048
  7. IMIPRAMINE [Concomitant]
     Active Substance: IMIPRAMINE
     Indication: Depression
     Dosage: 25 MG, QD (THREE MONTHS AGO)
     Route: 048

REACTIONS (7)
  - Glaucoma [Unknown]
  - Back pain [Recovering/Resolving]
  - Pain [Recovering/Resolving]
  - Pain in extremity [Recovering/Resolving]
  - Arthralgia [Unknown]
  - Discomfort [Not Recovered/Not Resolved]
  - Gait disturbance [Unknown]

NARRATIVE: CASE EVENT DATE: 20210101
